FAERS Safety Report 5747727-7 (Version None)
Quarter: 2008Q2

REPORT INFORMATION
  Report Type: 
  Country: None (occurrence: None)
  Receive Date: 20080523
  Receipt Date: 20080520
  Transmission Date: 20081010
  Serious: Yes (Other)
  Sender: FDA-Public Use
  Company Number: US-ASTRAZENECA-2008UW10390

PATIENT
  Age: 75 Year
  Sex: Female
  Weight: 49.4 kg

DRUGS (4)
  1. CRESTOR [Suspect]
     Indication: BLOOD CHOLESTEROL INCREASED
     Route: 048
     Dates: start: 20080201
  2. PARNATE [Concomitant]
  3. POTASSIUM CHLORIDE [Concomitant]
  4. CITOMEL [Concomitant]

REACTIONS (2)
  - DEPRESSION [None]
  - FATIGUE [None]
